FAERS Safety Report 9800231 (Version 4)
Quarter: 2014Q2

REPORT INFORMATION
  Report Type: Report from Study
  Country: CA (occurrence: CA)
  Receive Date: 20140106
  Receipt Date: 20140509
  Transmission Date: 20141212
  Serious: Yes (Other)
  Sender: FDA-Public Use
  Company Number: CA-ABBVIE-14P-028-1186511-00

PATIENT
  Sex: Male
  Weight: 95.34 kg

DRUGS (2)
  1. HUMIRA [Suspect]
     Indication: CROHN^S DISEASE
     Route: 058
     Dates: start: 20131025, end: 20131220
  2. HUMIRA [Suspect]
     Route: 058
     Dates: start: 201402

REACTIONS (2)
  - Abdominal hernia [Recovered/Resolved]
  - Drug effect decreased [Not Recovered/Not Resolved]
